FAERS Safety Report 11281103 (Version 1)
Quarter: 2015Q3

REPORT INFORMATION
  Report Type: Report from Study
  Country: PL (occurrence: PL)
  Receive Date: 20150717
  Receipt Date: 20150717
  Transmission Date: 20151125
  Serious: Yes (Life-Threatening, Hospitalization)
  Sender: FDA-Public Use
  Company Number: PL-ABBVIE-15P-129-1424939-00

PATIENT
  Age: 41 Year
  Sex: Female
  Weight: 58 kg

DRUGS (11)
  1. ABT-450/RITONAVIR/ABT-267 [Suspect]
     Active Substance: OMBITASVIR\PARITAPREVIR\RITONAVIR
     Indication: CHRONIC HEPATITIS C
     Dosage: 25/150/100 MG IN 1 D
     Route: 048
     Dates: start: 20150309, end: 20150325
  2. PREDNISONE. [Concomitant]
     Active Substance: PREDNISONE
     Indication: RENAL TRANSPLANT
     Route: 048
     Dates: start: 2010, end: 20150325
  3. POLOCARD [Concomitant]
     Active Substance: ASPIRIN
     Indication: RENAL TRANSPLANT
  4. HELICID [Concomitant]
     Indication: HYPERCHLORHYDRIA
     Route: 048
     Dates: start: 2010
  5. PREDNISONE. [Concomitant]
     Active Substance: PREDNISONE
     Route: 048
     Dates: start: 20150402
  6. ABT-333 [Suspect]
     Active Substance: DASABUVIR
     Indication: CHRONIC HEPATITIS C
     Route: 048
     Dates: start: 20150309, end: 20150325
  7. CYCLOSPORINE. [Concomitant]
     Active Substance: CYCLOSPORINE
     Indication: RENAL TRANSPLANT
     Route: 048
     Dates: start: 2010, end: 20150325
  8. MYCOPHENOLATE MOFETIL. [Concomitant]
     Active Substance: MYCOPHENOLATE MOFETIL
     Indication: RENAL TRANSPLANT
     Route: 048
     Dates: start: 2010, end: 20150325
  9. ATENOLOL. [Concomitant]
     Active Substance: ATENOLOL
     Indication: SECONDARY HYPERTENSION
     Route: 048
     Dates: start: 20150309, end: 20150325
  10. POLOCARD [Concomitant]
     Active Substance: ASPIRIN
     Indication: ANTIPLATELET THERAPY
     Route: 048
     Dates: start: 2010
  11. HELICID [Concomitant]
     Indication: PROPHYLAXIS

REACTIONS (2)
  - Escherichia sepsis [Recovered/Resolved]
  - Multi-organ failure [Recovered/Resolved]

NARRATIVE: CASE EVENT DATE: 20150325
